FAERS Safety Report 23428441 (Version 1)
Quarter: 2024Q1

REPORT INFORMATION
  Report Type: Spontaneous
  Country: FR (occurrence: FR)
  Receive Date: 20240122
  Receipt Date: 20240122
  Transmission Date: 20240410
  Serious: Yes (Hospitalization)
  Sender: FDA-Public Use
  Company Number: None

PATIENT
  Age: 61 Year
  Sex: Female
  Weight: 86 kg

DRUGS (8)
  1. NEFOPAM [Suspect]
     Active Substance: NEFOPAM
     Indication: Pain
     Dosage: 397 MILLIGRAM, 1 TOTAL
     Route: 042
     Dates: start: 20231207, end: 20231213
  2. GABAPENTIN [Suspect]
     Active Substance: GABAPENTIN
     Indication: Pain
     Dosage: 900 MILLIGRAM, QD
     Route: 048
     Dates: start: 20231208, end: 20231211
  3. OXYCODONE [Suspect]
     Active Substance: OXYCODONE
     Indication: Pain
     Dosage: 192 MILLIGRAM, 1 TOTAL
     Route: 042
     Dates: start: 20231207, end: 20231211
  4. KETOPROFEN [Suspect]
     Active Substance: KETOPROFEN
     Indication: Pain
     Dosage: 700 MILLIGRAM, 1 TOTAL
     Route: 042
     Dates: start: 20231208, end: 20231211
  5. SEVELAMER HYDROCHLORIDE [Concomitant]
     Active Substance: SEVELAMER HYDROCHLORIDE
     Dosage: UNK
     Route: 065
  6. THIAMINE HYDROCHLORIDE [Concomitant]
     Active Substance: THIAMINE HYDROCHLORIDE
     Dosage: UNK
     Route: 065
  7. TACROLIMUS [Concomitant]
     Active Substance: TACROLIMUS
     Dosage: UNK
     Route: 065
  8. PREDNISONE [Concomitant]
     Active Substance: PREDNISONE
     Dosage: UNK
     Route: 065

REACTIONS (1)
  - Confusional state [Recovered/Resolved]

NARRATIVE: CASE EVENT DATE: 20231210
